FAERS Safety Report 5357178-5 (Version None)
Quarter: 2007Q2

REPORT INFORMATION
  Report Type: 
  Country: None (occurrence: None)
  Receive Date: 20070614
  Receipt Date: 20070605
  Transmission Date: 20071010
  Serious: Yes (Hospitalization)
  Sender: FDA-Public Use
  Company Number: FR-JNJFOC-20070601130

PATIENT
  Sex: Male

DRUGS (2)
  1. LEUSTATINE [Suspect]
     Indication: MALIGNANT HISTIOCYTOSIS
     Route: 042
  2. ARACYTINE [Concomitant]
     Route: 065

REACTIONS (2)
  - ACCIDENTAL OVERDOSE [None]
  - MEDICATION ERROR [None]
